FAERS Safety Report 13839181 (Version 1)
Quarter: 2017Q3

REPORT INFORMATION
  Report Type: Spontaneous
  Country: US (occurrence: US)
  Receive Date: 20170805
  Receipt Date: 20170805
  Transmission Date: 20171127
  Serious: Yes (Disabling, Other)
  Sender: FDA-Public Use
  Company Number: None

PATIENT
  Age: 63 Year
  Sex: Male
  Weight: 76.27 kg

DRUGS (2)
  1. FLAGYL [Suspect]
     Active Substance: METRONIDAZOLE\METRONIDAZOLE HYDROCHLORIDE
     Indication: DIVERTICULITIS
     Dosage: 500MG 30 3X/DAY 1ST BY IV, THEN BY MOUTH
     Route: 042
     Dates: start: 20170627, end: 20170704
  2. METRONIDAZOLE. [Suspect]
     Active Substance: METRONIDAZOLE
     Indication: DIVERTICULITIS
     Route: 048
     Dates: start: 20170627, end: 20170704

REACTIONS (5)
  - Dizziness postural [None]
  - Optic neuritis [None]
  - Fall [None]
  - Neuropathy peripheral [None]
  - Toxic encephalopathy [None]

NARRATIVE: CASE EVENT DATE: 20170627
